FAERS Safety Report 23746816 (Version 7)
Quarter: 2025Q1

REPORT INFORMATION
  Report Type: Report from Study
  Country: US (occurrence: US)
  Receive Date: 20240416
  Receipt Date: 20250326
  Transmission Date: 20250409
  Serious: Yes (Hospitalization)
  Sender: NOVARTIS
  Company Number: US-002147023-NVSC2024US078984

PATIENT
  Sex: Female

DRUGS (1)
  1. KESIMPTA [Suspect]
     Active Substance: OFATUMUMAB
     Indication: Multiple sclerosis
     Route: 058
     Dates: start: 20230922

REACTIONS (6)
  - Multiple sclerosis pseudo relapse [Unknown]
  - Oral herpes [Unknown]
  - Influenza like illness [Unknown]
  - Urinary tract infection [Unknown]
  - B-lymphocyte count decreased [Unknown]
  - Malaise [Unknown]
